FAERS Safety Report 8514257-9 (Version None)
Quarter: 2012Q3

REPORT INFORMATION
  Report Type: 
  Country: None (occurrence: None)
  Receive Date: 20120717
  Receipt Date: 20120712
  Transmission Date: 20120928
  Serious: Yes (Disabling)
  Sender: FDA-Public Use
  Company Number: US-PFIZER INC-2012168363

PATIENT
  Sex: Female
  Weight: 52 kg

DRUGS (4)
  1. CYMBALTA [Concomitant]
     Indication: DEPRESSION
     Dosage: UNK
  2. GABAPENTIN [Concomitant]
     Indication: PAIN
     Dosage: UNK
  3. XANAX [Suspect]
     Indication: PANIC ATTACK
     Dosage: 1 MG, 2X/DAY
     Route: 048
     Dates: start: 20100201
  4. XANAX [Suspect]
     Indication: ANXIETY

REACTIONS (5)
  - BRAIN INJURY [None]
  - DEPRESSION [None]
  - PANIC ATTACK [None]
  - ANXIETY [None]
  - NECK INJURY [None]
